FAERS Safety Report 8180802-9 (Version None)
Quarter: 2012Q1

REPORT INFORMATION
  Report Type: 
  Country: None (occurrence: None)
  Receive Date: 20120301
  Receipt Date: 20120301
  Transmission Date: 20120608
  Serious: No
  Sender: FDA-Public Use
  Company Number: None

PATIENT

DRUGS (1)
  1. SALONPAS [Suspect]
     Dosage: 3 WEEKS AGO

REACTIONS (3)
  - CHEMICAL INJURY [None]
  - RASH [None]
  - BURNING SENSATION [None]
